FAERS Safety Report 16257963 (Version 1)
Quarter: 2019Q2

REPORT INFORMATION
  Report Type: Spontaneous
  Country: US (occurrence: US)
  Receive Date: 20190430
  Receipt Date: 20190430
  Transmission Date: 20190711
  Serious: No
  Sender: FDA-Public Use
  Company Number: US-TEVA-2019-US-1042401

PATIENT
  Age: 41 Year
  Sex: Female

DRUGS (3)
  1. ABSORICA [Suspect]
     Active Substance: ISOTRETINOIN
     Dosage: 30 MILLIGRAM DAILY;
     Route: 065
     Dates: end: 201902
  2. CLARAVIS [Suspect]
     Active Substance: ISOTRETINOIN
     Indication: ACNE
     Dosage: 40 MILLIGRAM DAILY;
     Route: 065
     Dates: start: 201811, end: 201812
  3. ABSORICA [Suspect]
     Active Substance: ISOTRETINOIN
     Indication: ACNE
     Dosage: 60 MILLIGRAM DAILY;
     Route: 065
     Dates: start: 201812

REACTIONS (3)
  - Joint noise [Unknown]
  - Pain [Not Recovered/Not Resolved]
  - Depression [Recovered/Resolved]

NARRATIVE: CASE EVENT DATE: 201812
